FAERS Safety Report 9192686 (Version 4)
Quarter: 2013Q3

REPORT INFORMATION
  Report Type: Spontaneous
  Country: US (occurrence: US)
  Receive Date: 20130327
  Receipt Date: 20130930
  Transmission Date: 20140515
  Serious: Yes (Other)
  Sender: FDA-Public Use
  Company Number: US-BAYER-2013-036111

PATIENT
  Age: 26 Year
  Sex: Female
  Weight: 53.97 kg

DRUGS (2)
  1. MIRENA [Suspect]
     Indication: CONTRACEPTION
     Dosage: 20 MCG/24HR, CONT
     Route: 015
     Dates: start: 20111025, end: 20130321
  2. MIRENA [Suspect]
     Indication: CONTRACEPTION

REACTIONS (6)
  - Pregnancy with contraceptive device [Recovered/Resolved]
  - Drug ineffective [None]
  - Haemorrhage in pregnancy [Recovered/Resolved]
  - Abortion spontaneous [None]
  - Device dislocation [Recovered/Resolved]
  - Device dislocation [Recovered/Resolved]
